FAERS Safety Report 6637298-5 (Version None)
Quarter: 2010Q1

REPORT INFORMATION
  Report Type: 
  Country: None (occurrence: None)
  Receive Date: 20100316
  Receipt Date: 20100225
  Transmission Date: 20100710
  Serious: No
  Sender: FDA-Public Use
  Company Number: US-ABBOTT-10P-163-0630199-00

PATIENT
  Weight: 78.996 kg

DRUGS (6)
  1. TRILIPIX [Suspect]
     Indication: BLOOD CHOLESTEROL INCREASED
     Dates: start: 20090101, end: 20091101
  2. TRILIPIX [Suspect]
     Dates: start: 20100212
  3. METOPROLOL TARTRATE [Concomitant]
     Indication: HYPERTENSION
  4. LISINOPRIL [Concomitant]
     Indication: HYPERTENSION
  5. METHADONE HYDROCHLORIDE [Concomitant]
     Indication: HEAD INJURY
     Dates: start: 19990101
  6. XANAX [Concomitant]
     Indication: ANXIETY

REACTIONS (4)
  - ASTHENIA [None]
  - DECREASED APPETITE [None]
  - NAUSEA [None]
  - SKIN LESION [None]
